FAERS Safety Report 17976266 (Version 2)
Quarter: 2020Q4

REPORT INFORMATION
  Report Type: Report from Study
  Country: ES (occurrence: ES)
  Receive Date: 20200702
  Receipt Date: 20201009
  Transmission Date: 20210113
  Serious: Yes (Other)
  Sender: FDA-Public Use
  Company Number: ES-TAKEDA-2020TUS028546

PATIENT
  Age: 52 Year
  Sex: Female
  Weight: 110 kg

DRUGS (12)
  1. BORTEZOMIB. [Suspect]
     Active Substance: BORTEZOMIB
     Dosage: 1.3 MILLIGRAM/SQ. METER, QD
     Route: 041
     Dates: start: 20190923, end: 20200112
  2. DEXAMETHASONE. [Suspect]
     Active Substance: DEXAMETHASONE
     Dosage: UNK
     Route: 048
     Dates: start: 20191028
  3. LENALIDOMIDE [Suspect]
     Active Substance: LENALIDOMIDE
     Dosage: 25 MILLIGRAM, QD
     Route: 048
     Dates: start: 20190722, end: 20191017
  4. TERBASMIN                          /00199201/ [Concomitant]
     Indication: ASTHMA
     Dosage: 500 MICROGRAM
  5. BORTEZOMIB. [Suspect]
     Active Substance: BORTEZOMIB
     Dosage: 1.3 MILLIGRAM/SQ. METER
     Route: 041
     Dates: start: 20190722, end: 20191021
  6. LENALIDOMIDE [Suspect]
     Active Substance: LENALIDOMIDE
     Indication: PLASMA CELL MYELOMA
     Dosage: UNK
     Route: 048
     Dates: start: 20191125
  7. LENALIDOMIDE [Suspect]
     Active Substance: LENALIDOMIDE
     Dosage: 25 MILLIGRAM, QD
     Route: 048
     Dates: start: 20190923, end: 20200112
  8. DEXAMETHASONE. [Suspect]
     Active Substance: DEXAMETHASONE
     Indication: PLASMA CELL MYELOMA
     Dosage: 40 MILLIGRAM
     Route: 048
     Dates: start: 20190923, end: 20200112
  9. HIDROXIL [Concomitant]
     Active Substance: ALUMINUM HYDROXIDE
     Dosage: UNK UNK, QD
     Route: 048
     Dates: start: 20190911
  10. BORTEZOMIB. [Suspect]
     Active Substance: BORTEZOMIB
     Indication: PLASMA CELL MYELOMA
     Dosage: UNK
     Route: 041
     Dates: start: 20191021
  11. DEXAMETHASONE. [Suspect]
     Active Substance: DEXAMETHASONE
     Dosage: 40 MILLIGRAM, QD
     Route: 048
     Dates: start: 20190722, end: 20191021
  12. SYMBICORT [Concomitant]
     Active Substance: BUDESONIDE\FORMOTEROL FUMARATE DIHYDRATE
     Indication: ASTHMA
     Dosage: UNK

REACTIONS (3)
  - Deep vein thrombosis [Recovered/Resolved]
  - Venous thrombosis [Recovered/Resolved with Sequelae]
  - Thrombophlebitis superficial [Recovered/Resolved with Sequelae]

NARRATIVE: CASE EVENT DATE: 20191017
